FAERS Safety Report 17759569 (Version 1)
Quarter: 2020Q2

REPORT INFORMATION
  Report Type: Report from Study
  Country: AR (occurrence: AR)
  Receive Date: 20200508
  Receipt Date: 20200508
  Transmission Date: 20200714
  Serious: Yes (Life-Threatening, Hospitalization)
  Sender: FDA-Public Use
  Company Number: PHHY2017AR107330

PATIENT
  Age: 69 Year
  Sex: Female

DRUGS (7)
  1. SANDOSTATIN LAR DEPOT [Suspect]
     Active Substance: OCTREOTIDE ACETATE
     Dosage: UNK
     Route: 065
     Dates: start: 201805
  2. LOTRIAL [Concomitant]
     Active Substance: ENALAPRIL MALEATE
     Indication: BLOOD PRESSURE MEASUREMENT
     Route: 065
  3. OMEPRAZOLE. [Concomitant]
     Active Substance: OMEPRAZOLE
     Indication: PRODUCT USED FOR UNKNOWN INDICATION
     Route: 065
  4. SANDOSTATIN LAR DEPOT [Suspect]
     Active Substance: OCTREOTIDE ACETATE
     Indication: ACROMEGALY
     Dosage: UNK UNK, QMO
     Route: 065
     Dates: start: 20150101, end: 201708
  5. METFORMIN [Concomitant]
     Active Substance: METFORMIN HYDROCHLORIDE
     Indication: PRODUCT USED FOR UNKNOWN INDICATION
     Dosage: 750 MG, QD
     Route: 065
  6. ENALAPRIL [Concomitant]
     Active Substance: ENALAPRIL
     Indication: PRODUCT USED FOR UNKNOWN INDICATION
     Route: 065
  7. CARVEDILOL. [Concomitant]
     Active Substance: CARVEDILOL
     Indication: PRODUCT USED FOR UNKNOWN INDICATION
     Route: 065

REACTIONS (22)
  - Bronchitis [Recovering/Resolving]
  - Procedural pain [Unknown]
  - Lip swelling [Not Recovered/Not Resolved]
  - Depression [Unknown]
  - Weight decreased [Unknown]
  - Diverticulitis [Unknown]
  - Eating disorder [Unknown]
  - Productive cough [Not Recovered/Not Resolved]
  - Post-traumatic stress disorder [Unknown]
  - Abdominal pain upper [Unknown]
  - Haemorrhage [Recovered/Resolved]
  - Inflammation [Recovering/Resolving]
  - Respiratory disorder [Not Recovered/Not Resolved]
  - Malformation venous [Unknown]
  - Decreased immune responsiveness [Not Recovered/Not Resolved]
  - Blood glucose increased [Unknown]
  - Uterine polyp [Recovered/Resolved]
  - Pneumonia [Recovering/Resolving]
  - Swollen tongue [Unknown]
  - Vomiting [Unknown]
  - Chest pain [Recovering/Resolving]
  - Haemorrhoids [Not Recovered/Not Resolved]

NARRATIVE: CASE EVENT DATE: 20170717
